FAERS Safety Report 5100043-9 (Version None)
Quarter: 2006Q3

REPORT INFORMATION
  Report Type: 
  Country: None (occurrence: None)
  Receive Date: 20060908
  Receipt Date: 20060713
  Transmission Date: 20061208
  Serious: Yes (Hospitalization)
  Sender: FDA-Public Use
  Company Number: 2006UW14425

PATIENT
  Age: 82 Year
  Sex: Male
  Weight: 95.3 kg

DRUGS (8)
  1. TOPROL-XL [Suspect]
     Indication: HYPERTENSION
     Route: 048
  2. TOPROL-XL [Suspect]
     Route: 048
  3. TOPROL-XL [Suspect]
     Route: 048
  4. TOPROL-XL [Suspect]
     Route: 048
     Dates: start: 20060501
  5. PLAVIX [Concomitant]
  6. HYZAAR [Concomitant]
  7. ASPIRIN [Concomitant]
  8. CRESTOR [Concomitant]

REACTIONS (5)
  - CARDIAC PACEMAKER INSERTION [None]
  - DIARRHOEA [None]
  - DIZZINESS [None]
  - FATIGUE [None]
  - INCORRECT DOSE ADMINISTERED [None]
